FAERS Safety Report 6054205-7 (Version None)
Quarter: 2009Q1

REPORT INFORMATION
  Report Type: 
  Country: None (occurrence: None)
  Receive Date: 20090127
  Receipt Date: 20090116
  Transmission Date: 20090719
  Serious: Yes (Other)
  Sender: FDA-Public Use
  Company Number: DE-ELI_LILLY_AND_COMPANY-DE200901002817

PATIENT
  Age: 46 Year
  Sex: Male
  Weight: 93.5 kg

DRUGS (2)
  1. BYETTA [Suspect]
     Indication: TYPE 2 DIABETES MELLITUS
     Dosage: 5 UG, 2/D
     Route: 058
     Dates: start: 20080929, end: 20081124
  2. GLIMEPIRIDE [Concomitant]
     Indication: TYPE 2 DIABETES MELLITUS
     Dosage: 0.5 D/F, DAILY (1/D)
     Route: 048
     Dates: start: 20080929, end: 20081124

REACTIONS (1)
  - COLITIS ULCERATIVE [None]
